FAERS Safety Report 6228067-9 (Version None)
Quarter: 2009Q2

REPORT INFORMATION
  Report Type: 
  Country: None (occurrence: None)
  Receive Date: 20090612
  Receipt Date: 20090601
  Transmission Date: 20091009
  Serious: Yes (Hospitalization, Other)
  Sender: FDA-Public Use
  Company Number: US-MERCK-0809USA03571

PATIENT
  Age: 64 Year
  Sex: Female

DRUGS (6)
  1. FOSAMAX [Suspect]
     Indication: BONE DISORDER
     Route: 048
     Dates: start: 20020101, end: 20070401
  2. FOSAMAX [Suspect]
     Indication: OSTEOPOROSIS
     Route: 048
     Dates: start: 20020101, end: 20070401
  3. CALCIUM CARBONATE AND ERGOCALCIFEROL [Concomitant]
     Route: 065
  4. SIMVASTATIN [Concomitant]
     Indication: HYPERLIPIDAEMIA
     Route: 048
  5. SALCATONIN [Concomitant]
     Route: 065
  6. TRIFLURIDINE [Concomitant]
     Route: 065

REACTIONS (19)
  - ABSCESS [None]
  - ACTINOMYCOSIS [None]
  - BONE DISORDER [None]
  - CATARACT OPERATION [None]
  - CYSTITIS [None]
  - DEAFNESS [None]
  - FACIAL PAIN [None]
  - HELICOBACTER GASTRITIS [None]
  - MUSCLE STRAIN [None]
  - MUSCULOSKELETAL PAIN [None]
  - NECK PAIN [None]
  - NICOTINE DEPENDENCE [None]
  - OSTEOMYELITIS [None]
  - OSTEONECROSIS [None]
  - OTITIS MEDIA [None]
  - RECTAL POLYP [None]
  - ROAD TRAFFIC ACCIDENT [None]
  - SIALOADENITIS [None]
  - TYPE 2 DIABETES MELLITUS [None]
